FAERS Safety Report 8846243 (Version 1)
Quarter: 2012Q4

REPORT INFORMATION
  Report Type: 
  Country: US (occurrence: US)
  Receive Date: 20121017
  Receipt Date: 20121017
  Transmission Date: 20130627
  Serious: Yes (Hospitalization, Other)
  Sender: FDA-Public Use
  Company Number: PHHY2012US089440

PATIENT
  Age: 25 Year
  Sex: Male

DRUGS (13)
  1. METHOTREXATE [Suspect]
     Indication: SPINDLE CELL SARCOMA
     Dosage: 20 g, UNK
  2. OMEPRAZOLE [Interacting]
     Indication: STRESS ULCER
  3. CISPLATIN [Concomitant]
  4. DOXORUBICIN [Concomitant]
  5. LEUCOVORIN [Concomitant]
     Dosage: 15 mg, Q6H
     Route: 042
  6. LEUCOVORIN [Concomitant]
     Dosage: 120 mg/m2, Q6H
  7. LEUCOVORIN [Concomitant]
     Dosage: 500 mg/m2, Q6H
  8. LEUCOVORIN [Concomitant]
     Dosage: 15 mg, Q6H
     Route: 048
  9. DEXAMETHASONE [Concomitant]
  10. RANITIDINE [Concomitant]
  11. HYDROMORPHONE [Concomitant]
  12. PROCHLORPERAZINE [Concomitant]
  13. LANSOPRAZOLE [Concomitant]
     Indication: PROPHYLAXIS

REACTIONS (9)
  - Thrombocytopenia [Recovered/Resolved]
  - Mucosal inflammation [Recovered/Resolved]
  - Renal impairment [Recovered/Resolved]
  - Blood creatinine increased [Recovered/Resolved]
  - Grand mal convulsion [Recovered/Resolved]
  - Headache [Recovered/Resolved]
  - Chemotherapeutic drug level increased [Recovered/Resolved]
  - Toxicity to various agents [Recovered/Resolved]
  - Drug interaction [Unknown]
